FAERS Safety Report 4714463-5 (Version None)
Quarter: 2005Q3

REPORT INFORMATION
  Report Type: 
  Country: None (occurrence: None)
  Receive Date: 20050714
  Receipt Date: 20050614
  Transmission Date: 20060218
  Serious: Yes (Other)
  Sender: FDA-Public Use
  Company Number: 200515174US

PATIENT
  Age: 52 Year
  Sex: Female

DRUGS (6)
  1. LANTUS [Suspect]
     Indication: DIABETES MELLITUS NON-INSULIN-DEPENDENT
     Dosage: DOSE UNIT: UNITS
     Route: 058
     Dates: start: 20030101
  2. OPTICLIK (INSULIN INJECTION PEN) [Suspect]
     Dosage: DOSE: UNK
     Route: 058
     Dates: start: 20050401
  3. NOVOLOG [Concomitant]
  4. ZELNORM [Concomitant]
  5. NEXIUM [Concomitant]
  6. UNKNOWN DRUG [Concomitant]

REACTIONS (3)
  - DEVICE MALFUNCTION [None]
  - DRUG ADMINISTRATION ERROR [None]
  - HYPERGLYCAEMIA [None]
